FAERS Safety Report 7751844-X (Version None)
Quarter: 2011Q3

REPORT INFORMATION
  Report Type: 
  Country: None (occurrence: None)
  Receive Date: 20110914
  Receipt Date: 20110914
  Transmission Date: 20111222
  Serious: No
  Sender: FDA-Public Use
  Company Number: None

PATIENT
  Age: 64 Year
  Sex: Male
  Weight: 68.5 kg

DRUGS (2)
  1. RITUXIMAB [Suspect]
     Indication: CHRONIC LYMPHOCYTIC LEUKAEMIA
     Dosage: 750 MG ONCE IV;  240 MG EVERY DAY PO
     Route: 042
     Dates: start: 20090209
  2. RITUXIMAB [Suspect]
     Indication: CHRONIC LYMPHOCYTIC LEUKAEMIA
     Dosage: 750 MG ONCE IV;  240 MG EVERY DAY PO
     Route: 042
     Dates: start: 20110712, end: 20110712

REACTIONS (2)
  - HYPOTENSION [None]
  - DYSPNOEA [None]
